FAERS Safety Report 9798354 (Version 1)
Quarter: 2013Q4

REPORT INFORMATION
  Report Type: Spontaneous
  Country: SZ (occurrence: None)
  Receive Date: 20131230
  Receipt Date: 20131230
  Transmission Date: 20140711
  Serious: Yes (Hospitalization)
  Sender: FDA-Public Use
  Company Number: 2013CH010135

PATIENT
  Age: 54 Year
  Sex: Male

DRUGS (23)
  1. ALOXI [Suspect]
     Indication: PROPHYLAXIS OF NAUSEA AND VOMITING
     Route: 041
     Dates: start: 20131126, end: 20131126
  2. BUSILVEX [Suspect]
     Indication: IMMUNOSUPPRESSANT DRUG THERAPY
     Route: 041
     Dates: start: 20131128, end: 20131201
  3. ATG FRESENIUS [Suspect]
     Indication: IMMUNOSUPPRESSANT DRUG THERAPY
     Route: 041
     Dates: start: 20131129, end: 20131129
  4. ENDOXAN [Suspect]
     Indication: IMMUNOSUPPRESSANT DRUG THERAPY
     Route: 041
     Dates: start: 20131126, end: 20131127
  5. SOLUMEDROL [Suspect]
     Indication: IMMUNOSUPPRESSANT DRUG THERAPY
     Route: 041
     Dates: start: 20131129, end: 20131201
  6. AMIKIN [Suspect]
     Indication: INFECTION PROPHYLAXIS
     Route: 041
     Dates: start: 20131128, end: 20131130
  7. NOPIL [Suspect]
     Indication: PROPHYLAXIS
     Route: 048
     Dates: start: 20131122
  8. CEFEPIM [Suspect]
     Indication: BACTERIAL INFECTION
     Route: 041
     Dates: start: 20131128, end: 20131205
  9. DIFLUCAN [Suspect]
     Indication: PROPHYLAXIS
     Route: 048
     Dates: start: 20131121
  10. VALTREX [Suspect]
     Indication: PROPHYLAXIS
     Route: 048
     Dates: start: 20131121
  11. LASIX [Suspect]
     Indication: DIURETIC THERAPY
     Route: 041
     Dates: start: 20131126, end: 20131201
  12. PANTOZOL [Suspect]
     Indication: PROPHYLAXIS
     Route: 048
     Dates: start: 20131122
  13. ZYLORIC [Suspect]
     Indication: GOUT
     Route: 048
     Dates: start: 20131121, end: 20131203
  14. UROMITEXAN [Suspect]
     Indication: PROPHYLAXIS
     Route: 041
     Dates: start: 20131126, end: 20131127
  15. EMEND [Suspect]
     Indication: PROPHYLAXIS OF NAUSEA AND VOMITING
     Route: 041
     Dates: start: 20131126, end: 20131126
  16. SANDIMMUN (CICLOSPORIN) INFUSION [Concomitant]
  17. SOLUCORTEF (HYDROCORTISONE SODIUM SUCCINATE) [Concomitant]
  18. FORTECORTIN 9DEXAMETHASONE) [Concomitant]
  19. TAVEGYL (CLEMASTINE FUMARATE) [Concomitant]
  20. PASPERTIN (METOCLOPRAMIDE HYDROCHLORIDE) [Concomitant]
  21. HEPARIN [Concomitant]
  22. URSOFALK (URSODEOXYCHOLIC ACID) [Concomitant]
  23. TAZOBAC (PIPERACILLIN SODIUM, TAZOBACTAM SODIUM) [Concomitant]

REACTIONS (3)
  - Jaundice [None]
  - Haemolysis [None]
  - Hepatic enzyme increased [None]
